FAERS Safety Report 25417556 (Version 2)
Quarter: 2025Q2

REPORT INFORMATION
  Report Type: Spontaneous
  Country: US (occurrence: US)
  Receive Date: 20250610
  Receipt Date: 20250624
  Transmission Date: 20250717
  Serious: No
  Sender: PFIZER
  Company Number: US-PFIZER INC-PV202500069155

PATIENT
  Age: 60 Year
  Sex: Male
  Weight: 83.9 kg

DRUGS (4)
  1. PAXLOVID [Suspect]
     Active Substance: NIRMATRELVIR\RITONAVIR
     Indication: COVID-19 treatment
     Dosage: 300/100 MG PACK, 2X/DAY
     Route: 048
     Dates: start: 20250525, end: 20250530
  2. GUAIFENESIN [Concomitant]
     Active Substance: GUAIFENESIN
     Indication: COVID-19
     Dosage: 600 MG, 2X/DAY
  3. BENZONATATE [Concomitant]
     Active Substance: BENZONATATE
     Indication: COVID-19
     Dosage: 100 MG, 2X/DAY
  4. MUCINEX [Concomitant]
     Active Substance: GUAIFENESIN
     Indication: COVID-19
     Dosage: UNK, 2X/DAY

REACTIONS (1)
  - Therapeutic response unexpected [Unknown]

NARRATIVE: CASE EVENT DATE: 20250530
